FAERS Safety Report 8309473-5 (Version None)
Quarter: 2012Q2

REPORT INFORMATION
  Report Type: 
  Country: None (occurrence: None)
  Receive Date: 20120425
  Receipt Date: 20120420
  Transmission Date: 20120825
  Serious: Yes (Hospitalization, Other)
  Sender: FDA-Public Use
  Company Number: US-PFIZER INC-2012098576

PATIENT
  Sex: Male
  Weight: 96.145 kg

DRUGS (3)
  1. ZYRTEC [Concomitant]
     Indication: HYPERSENSITIVITY
     Dosage: UNK
  2. NEXIUM [Concomitant]
     Indication: ULCER
     Dosage: UNK
  3. GEODON [Suspect]
     Indication: BIPOLAR DISORDER
     Dosage: 80 MG, DAILY
     Route: 048
     Dates: start: 20100101

REACTIONS (3)
  - TACHYCARDIA [None]
  - DEPRESSION [None]
  - HYPERTENSION [None]
